FAERS Safety Report 9276372 (Version 4)
Quarter: 2013Q3

REPORT INFORMATION
  Report Type: Spontaneous
  Country: US (occurrence: US)
  Receive Date: 20130507
  Receipt Date: 20130829
  Transmission Date: 20140515
  Serious: Yes (Hospitalization)
  Sender: FDA-Public Use
  Company Number: US-GLAXOSMITHKLINE-A1008851A

PATIENT
  Age: 44 Year
  Sex: Male

DRUGS (2)
  1. FLOLAN [Suspect]
     Indication: COR PULMONALE CHRONIC
     Dosage: 16NGKM CONTINUOUS
     Route: 042
     Dates: start: 20130108
  2. REVATIO [Concomitant]

REACTIONS (9)
  - Device related infection [Recovered/Resolved]
  - Bacteraemia [Recovered/Resolved]
  - Central venous catheterisation [Recovered/Resolved]
  - Catheter site pain [Recovered/Resolved]
  - Headache [Recovered/Resolved]
  - Catheter site erythema [Recovered/Resolved]
  - Central venous catheter removal [Recovered/Resolved]
  - Chills [Unknown]
  - Surgery [Unknown]
